FAERS Safety Report 24795612 (Version 1)
Quarter: 2025Q1

REPORT INFORMATION
  Report Type: Spontaneous
  Country: CN (occurrence: CN)
  Receive Date: 20250101
  Receipt Date: 20250101
  Transmission Date: 20250408
  Serious: Yes (Other)
  Sender: NOVO NORDISK
  Company Number: CN-NOVOPROD-1341756

PATIENT
  Age: 53 Year
  Sex: Male
  Weight: 57 kg

DRUGS (2)
  1. TRESIBA [Suspect]
     Active Substance: INSULIN DEGLUDEC
     Indication: Type 1 diabetes mellitus
     Dosage: 10 IU, QD
  2. NOVORAPID [Suspect]
     Active Substance: INSULIN ASPART
     Indication: Type 1 diabetes mellitus
     Dosage: 24 IU, QD (10U IN THE MORNING, 6U AT NOON, 8U IN THE EVENING (BEFORE MEALS))
     Dates: start: 2015

REACTIONS (2)
  - Cataract [Unknown]
  - Retinal disorder [Unknown]

NARRATIVE: CASE EVENT DATE: 20240101
